FAERS Safety Report 16927396 (Version 1)
Quarter: 2019Q4

REPORT INFORMATION
  Report Type: Spontaneous
  Country: US (occurrence: US)
  Receive Date: 20191016
  Receipt Date: 20191016
  Transmission Date: 20200122
  Serious: No
  Sender: FDA-Public Use
  Company Number: US-OPTINOSE US, INC-2019OPT000769

PATIENT
  Age: 73 Year
  Sex: Male

DRUGS (6)
  1. XHANCE [Suspect]
     Active Substance: FLUTICASONE PROPIONATE
     Indication: RHINITIS ALLERGIC
  2. XHANCE [Suspect]
     Active Substance: FLUTICASONE PROPIONATE
     Indication: EUSTACHIAN TUBE DISORDER
  3. XHANCE [Suspect]
     Active Substance: FLUTICASONE PROPIONATE
     Indication: STEROID THERAPY
  4. XHANCE [Suspect]
     Active Substance: FLUTICASONE PROPIONATE
     Indication: ASTHMA
  5. XHANCE [Suspect]
     Active Substance: FLUTICASONE PROPIONATE
     Indication: NASAL POLYPS
     Route: 045
  6. XHANCE [Suspect]
     Active Substance: FLUTICASONE PROPIONATE
     Indication: COUGH

REACTIONS (3)
  - Product dose omission [Unknown]
  - No adverse event [Unknown]
  - Therapeutic response unexpected [Unknown]
